FAERS Safety Report 5611443-2 (Version None)
Quarter: 2008Q1

REPORT INFORMATION
  Report Type: 
  Country: None (occurrence: None)
  Receive Date: 20080201
  Receipt Date: 20080122
  Transmission Date: 20080703
  Serious: No
  Sender: FDA-Public Use
  Company Number: US-ELI_LILLY_AND_COMPANY-US200712002101

PATIENT
  Sex: Male

DRUGS (13)
  1. BYETTA [Suspect]
     Dosage: 10 UG, UNKNOWN
     Route: 058
  2. GLUCOPHAGE [Concomitant]
     Dosage: 1000 MG, 2/D
  3. NIASPAN [Concomitant]
     Dosage: 1500 MG, EACH EVENING
  4. UNIVASC [Concomitant]
     Dosage: 7.5 MG, EACH MORNING
  5. FOLBEE [Concomitant]
     Dosage: UNK, DAILY (1/D)
  6. ASPIRIN [Concomitant]
     Dosage: 81 MG, UNKNOWN
  7. MULTI-VITAMIN [Concomitant]
     Dosage: UNK, UNKNOWN
  8. NORVASC [Concomitant]
     Dosage: 5 MG, DAILY (1/D)
  9. CRESTOR [Concomitant]
     Dosage: 10 MG, EACH EVENING
  10. ZETIA [Concomitant]
     Dosage: 10 MG, DAILY (1/D)
  11. HUMALOG [Concomitant]
     Dosage: 12 U, 3/D
     Route: 058
  12. HUMALOG [Concomitant]
     Dosage: 2.85 U, EVERY HOUR
     Route: 058
  13. PRILOSEC [Concomitant]
     Dosage: 20 MG, DAILY (1/D)

REACTIONS (2)
  - DEVICE LEAKAGE [None]
  - PHARMACEUTICAL PRODUCT COMPLAINT [None]
